FAERS Safety Report 9125755 (Version 2)
Quarter: 2013Q2

REPORT INFORMATION
  Report Type: Spontaneous
  Country: US (occurrence: US)
  Receive Date: 20130227
  Receipt Date: 20130405
  Transmission Date: 20140414
  Serious: No
  Sender: FDA-Public Use
  Company Number: US-009507513-1302USA010316

PATIENT
  Sex: Male
  Weight: 98.41 kg

DRUGS (1)
  1. PEGINTRON [Suspect]
     Dosage: UNK UNK, QW
     Route: 058
     Dates: start: 20130116

REACTIONS (3)
  - Drug dose omission [Unknown]
  - Device malfunction [Unknown]
  - No adverse event [Unknown]
